FAERS Safety Report 8726390 (Version 2)
Quarter: 2012Q4

REPORT INFORMATION
  Report Type: Report from Study
  Country: US (occurrence: US)
  Receive Date: 20120816
  Receipt Date: 20121029
  Transmission Date: 20130627
  Serious: Yes (Other)
  Sender: FDA-Public Use
  Company Number: US-ASTELLAS-2012US006883

PATIENT
  Age: 62 Year
  Sex: Male
  Weight: 84 kg

DRUGS (6)
  1. ERLOTINIB TABLET [Suspect]
     Indication: NON-SMALL CELL LUNG CANCER
     Dosage: 100 mg, UID/QD
     Route: 048
     Dates: start: 20120501
  2. ERLOTINIB TABLET [Suspect]
     Dosage: 150 mg, UID/QD
     Route: 048
     Dates: start: 201205
  3. ERLOTINIB TABLET [Suspect]
     Dosage: 100 mg, UID/QD
     Route: 048
  4. PROTONIX [Concomitant]
     Indication: GASTROOESOPHAGEAL REFLUX DISEASE
     Dosage: UNK
     Route: 048
     Dates: start: 201205, end: 201207
  5. IMODIUM [Concomitant]
     Indication: DIARRHOEA
     Dosage: UNK
     Route: 048
     Dates: start: 201205
  6. ZOMETA [Concomitant]
     Indication: OSTEOPOROSIS
     Dosage: 1 DF, every 28 days
     Route: 042
     Dates: start: 201110

REACTIONS (13)
  - Incorrect dose administered [Unknown]
  - Hepatic neoplasm [Not Recovered/Not Resolved]
  - Aphonia [Not Recovered/Not Resolved]
  - Dysphonia [Not Recovered/Not Resolved]
  - Blood iron decreased [Unknown]
  - Dyspepsia [Not Recovered/Not Resolved]
  - Diarrhoea [Not Recovered/Not Resolved]
  - Nausea [Not Recovered/Not Resolved]
  - Weight decreased [Not Recovered/Not Resolved]
  - Asthenia [Not Recovered/Not Resolved]
  - Gastrooesophageal reflux disease [Not Recovered/Not Resolved]
  - Diarrhoea [Not Recovered/Not Resolved]
  - Vomiting [Unknown]
